FAERS Safety Report 6881796-6 (Version None)
Quarter: 2010Q3

REPORT INFORMATION
  Report Type: 
  Country: None (occurrence: None)
  Receive Date: 20100729
  Receipt Date: 20100721
  Transmission Date: 20110219
  Serious: Yes (Other)
  Sender: FDA-Public Use
  Company Number: US-PFIZER INC-2010062362

PATIENT
  Sex: Female

DRUGS (7)
  1. CELEBREX [Suspect]
     Indication: JOINT SWELLING
     Dosage: UNK
     Route: 048
     Dates: start: 20100101, end: 20100101
  2. CELEBREX [Suspect]
     Indication: ARTHRALGIA
  3. DEMADEX [Concomitant]
     Indication: OEDEMA PERIPHERAL
     Dosage: 20 MG, 1X/DAY
     Route: 048
     Dates: start: 20100401
  4. SPIRONOLACTONE [Concomitant]
     Indication: OEDEMA PERIPHERAL
     Dosage: 50 MG, 1X/DAY
     Route: 048
     Dates: start: 20100501
  5. ACETYLSALICYLIC ACID [Concomitant]
     Indication: CARDIAC FAILURE CONGESTIVE
     Dosage: UNK
  6. OXYCODONE [Concomitant]
     Dosage: UNK
  7. PERCOCET [Concomitant]
     Dosage: UNK

REACTIONS (3)
  - ARTHROPATHY [None]
  - OEDEMA PERIPHERAL [None]
  - PAIN [None]
